FAERS Safety Report 24383040 (Version 1)
Quarter: 2024Q4

REPORT INFORMATION
  Report Type: Spontaneous
  Country: DE (occurrence: DE)
  Receive Date: 20241001
  Receipt Date: 20241001
  Transmission Date: 20250115
  Serious: Yes (Life-Threatening, Other)
  Sender: PFIZER
  Company Number: DE-ROCHE-771212

PATIENT
  Age: 74 Year
  Sex: Female

DRUGS (10)
  1. VINCRISTINE SULFATE [Suspect]
     Active Substance: VINCRISTINE SULFATE
     Indication: Diffuse large B-cell lymphoma
     Dosage: 1.4 MG/M2, MONTHLY
     Route: 065
     Dates: start: 2006
  2. VINCRISTINE SULFATE [Suspect]
     Active Substance: VINCRISTINE SULFATE
     Dosage: LAST 4 CYCLES IN 50% DOSE REDUCTION
     Route: 065
  3. PREDNISOLONE [Suspect]
     Active Substance: PREDNISOLONE
     Indication: Diffuse large B-cell lymphoma
     Dosage: 100 MG, MONTHLY
     Route: 065
     Dates: start: 2006
  4. PREDNISOLONE [Suspect]
     Active Substance: PREDNISOLONE
     Dosage: LAST 4 CYCLES IN 50% DOSE REDUCTION
  5. CYCLOPHOSPHAMIDE [Suspect]
     Active Substance: CYCLOPHOSPHAMIDE
     Indication: Diffuse large B-cell lymphoma
     Dosage: 750 MG/M2, MONTHLY
     Dates: start: 2006
  6. CYCLOPHOSPHAMIDE [Suspect]
     Active Substance: CYCLOPHOSPHAMIDE
     Dosage: LAST 4 CYCLES IN 50% DOSE REDUCTION
  7. RITUXIMAB [Suspect]
     Active Substance: RITUXIMAB
     Indication: Diffuse large B-cell lymphoma
     Dosage: 375 MG/M2, MONTHLY
     Route: 042
     Dates: start: 2006
  8. RITUXIMAB [Suspect]
     Active Substance: RITUXIMAB
     Dosage: LAST 4 CYCLES IN 50% DOSE REDUCTION
     Route: 042
  9. DOXORUBICIN HYDROCHLORIDE [Suspect]
     Active Substance: DOXORUBICIN HYDROCHLORIDE
     Indication: Diffuse large B-cell lymphoma
     Dosage: 20 MG/M2, MONTHLY
     Route: 065
     Dates: start: 2006
  10. DOXORUBICIN HYDROCHLORIDE [Suspect]
     Active Substance: DOXORUBICIN HYDROCHLORIDE
     Dosage: LAST 4 CYCLES IN 50% DOSE REDUCTION
     Route: 065

REACTIONS (13)
  - Hyperglycaemia [Unknown]
  - Leukopenia [Unknown]
  - Pyrexia [Unknown]
  - Anaemia [Unknown]
  - Thrombosis [Unknown]
  - Condition aggravated [Unknown]
  - Cholestasis [Unknown]
  - Infection [Unknown]
  - Febrile neutropenia [Unknown]
  - Diarrhoea [Unknown]
  - Nausea [Unknown]
  - Blood creatinine increased [Unknown]
  - Agitation [Unknown]
